FAERS Safety Report 13005692 (Version 2)
Quarter: 2017Q1

REPORT INFORMATION
  Report Type: Report from Study
  Country: US (occurrence: US)
  Receive Date: 20161207
  Receipt Date: 20170127
  Transmission Date: 20170428
  Serious: Yes (Other)
  Sender: FDA-Public Use
  Company Number: US-AMGEN-USASL2016171531

PATIENT
  Age: 57 Year
  Sex: Female

DRUGS (1)
  1. ENBREL [Suspect]
     Active Substance: ETANERCEPT
     Indication: PSORIATIC ARTHROPATHY
     Dosage: 50 MG, QWK
     Route: 065
     Dates: start: 20161117

REACTIONS (5)
  - Road traffic accident [Unknown]
  - Hypoaesthesia [Unknown]
  - Spinal pain [Unknown]
  - Spinal cord neoplasm [Unknown]
  - Meningioma [Unknown]

NARRATIVE: CASE EVENT DATE: 20161121
